FAERS Safety Report 15298158 (Version 5)
Quarter: 2019Q4

REPORT INFORMATION
  Report Type: Report from Study
  Country: BE (occurrence: BE)
  Receive Date: 20180820
  Receipt Date: 20191105
  Transmission Date: 20200122
  Serious: Yes (Other)
  Sender: FDA-Public Use
  Company Number: BE-PFIZER INC-2017535937

PATIENT
  Sex: Female
  Weight: 61.5 kg

DRUGS (19)
  1. BEVACIZUMAB. [Suspect]
     Active Substance: BEVACIZUMAB
     Indication: OVARIAN CANCER
     Dosage: 960 MG, EVERY 3 WEEKS
     Route: 042
     Dates: start: 20171102
  2. MOVICOL [Concomitant]
     Active Substance: POLYETHYLENE GLYCOL 3350\POTASSIUM CHLORIDE\SODIUM BICARBONATE\SODIUM CHLORIDE
     Dosage: UNK
     Dates: start: 20180211
  3. DAFALGAN [Concomitant]
     Active Substance: ACETAMINOPHEN
     Dosage: 1 DF, AS NEEDED
     Route: 065
     Dates: start: 20180131
  4. PACLITAXEL. [Suspect]
     Active Substance: PACLITAXEL
     Dosage: 133.6 MG/M2, WEEKLY
     Route: 042
     Dates: start: 20171123, end: 20180412
  5. TEMESTA EXPIDET [Concomitant]
     Active Substance: LORAZEPAM
     Indication: INSOMNIA
     Dosage: 1 MG, 1X/DAY
     Route: 065
     Dates: start: 20180207, end: 20180208
  6. FRAXIPARINE [Concomitant]
     Active Substance: NADROPARIN CALCIUM
     Dosage: 0.3 ML, UNK
     Route: 058
     Dates: start: 20180208, end: 20180226
  7. NORGALAX [DOCUSATE SODIUM] [Concomitant]
     Indication: CONSTIPATION
     Dosage: UNK
     Dates: start: 20180212, end: 20180212
  8. PANTOMED [PANTOPRAZOLE SODIUM SESQUIHYDRATE] [Concomitant]
     Active Substance: PANTOPRAZOLE SODIUM
     Dosage: 40 MG, 1X/DAY
     Dates: start: 20180209, end: 20180210
  9. PARACETAMOL [Concomitant]
     Active Substance: ACETAMINOPHEN
     Dosage: 1 G, UNK
     Route: 042
     Dates: start: 20180208, end: 20180210
  10. CLEEN [Concomitant]
     Dosage: UNK
     Dates: start: 20180206, end: 20180206
  11. ACLASTA [Concomitant]
     Active Substance: ZOLEDRONIC ACID
     Indication: BACK PAIN
     Dosage: 5 MG, EVERY 6 MONTHS
     Route: 042
     Dates: start: 20180621
  12. TRAMADOL. [Concomitant]
     Active Substance: TRAMADOL
     Dosage: 50 MG, 1X/DAY
     Dates: start: 20180209, end: 20180209
  13. PACLITAXEL. [Suspect]
     Active Substance: PACLITAXEL
     Indication: OVARIAN CANCER
     Dosage: 132 MG/M2, WEEKLY
     Route: 042
     Dates: start: 20171102
  14. CARBOPLATIN. [Suspect]
     Active Substance: CARBOPLATIN
     Indication: OVARIAN CANCER
     Dosage: 6 AUC, EVERY 3 WEEKS
     Route: 042
     Dates: start: 20171102, end: 20180329
  15. BEVACIZUMAB. [Suspect]
     Active Substance: BEVACIZUMAB
     Dosage: 975 MG, UNK
     Route: 042
     Dates: start: 20171123
  16. BEVACIZUMAB. [Suspect]
     Active Substance: BEVACIZUMAB
     Dosage: 1027 MG, EVERY 3 WEEKS
     Route: 042
     Dates: start: 20180712
  17. VOLTAREN [Concomitant]
     Active Substance: DICLOFENAC SODIUM
     Dosage: 50 MG, 1X/DAY
     Route: 048
     Dates: start: 20171109
  18. BEFACT /00527001/ [Concomitant]
     Active Substance: CYANOCOBALAMIN\PYRIDOXINE\THIAMINE
     Dosage: UNK
     Route: 065
     Dates: start: 20180211, end: 20180831
  19. XANAX [Concomitant]
     Active Substance: ALPRAZOLAM
     Indication: ANXIETY
     Dosage: 0.5 MG, 1X/DAY
     Dates: start: 20180206, end: 20180226

REACTIONS (16)
  - Neuropathy peripheral [Not Recovered/Not Resolved]
  - Rash [Unknown]
  - Abdominal wound dehiscence [Recovered/Resolved]
  - Chest pain [Not Recovered/Not Resolved]
  - Hypertension [Unknown]
  - Aphthous ulcer [Recovered/Resolved]
  - Anal pruritus [Recovered/Resolved]
  - Oedema peripheral [Recovered/Resolved]
  - Back pain [Not Recovered/Not Resolved]
  - Fatigue [Recovered/Resolved]
  - Ecchymosis [Recovered/Resolved]
  - Toothache [Unknown]
  - Musculoskeletal pain [Unknown]
  - Oedema peripheral [Unknown]
  - Fall [Unknown]
  - Nausea [Unknown]

NARRATIVE: CASE EVENT DATE: 20171102
